FAERS Safety Report 19968927 (Version 1)
Quarter: 2021Q4

REPORT INFORMATION
  Report Type: Spontaneous
  Country: US (occurrence: US)
  Receive Date: 20211015
  Receipt Date: 20211015
  Transmission Date: 20220303
  Serious: No
  Sender: FDA-Public Use
  Company Number: None

PATIENT
  Age: 66 Year
  Sex: Female

DRUGS (1)
  1. AMBRISENTAN [Suspect]
     Active Substance: AMBRISENTAN
     Indication: Pulmonary hypertension
     Route: 048
     Dates: start: 20170815, end: 20210930

REACTIONS (3)
  - Therapy cessation [None]
  - Fluid retention [None]
  - Anaemia [None]

NARRATIVE: CASE EVENT DATE: 20210930
